FAERS Safety Report 5936805-5 (Version None)
Quarter: 2008Q4

REPORT INFORMATION
  Report Type: 
  Country: None (occurrence: None)
  Receive Date: 20081029
  Receipt Date: 20081015
  Transmission Date: 20090506
  Serious: Yes (Other)
  Sender: FDA-Public Use
  Company Number: 430010K08USA

PATIENT
  Age: 57 Year
  Sex: Male

DRUGS (1)
  1. NOVANTRONE [Suspect]
     Indication: MULTIPLE SCLEROSIS
     Dosage: 3 DOSAGE FORMS, INTRAVENOUS(NOT  OTHERWISE  SPECIFIED)
     Route: 042
     Dates: start: 20070122, end: 20080501

REACTIONS (1)
  - CARDIOMYOPATHY [None]
